FAERS Safety Report 5365545-9 (Version None)
Quarter: 2007Q2

REPORT INFORMATION
  Report Type: 
  Country: None (occurrence: None)
  Receive Date: 20070621
  Receipt Date: 20070613
  Transmission Date: 20071010
  Serious: Yes (Hospitalization, Other)
  Sender: FDA-Public Use
  Company Number: B0472307A

PATIENT
  Age: 28 Year
  Sex: Male
  Weight: 66 kg

DRUGS (6)
  1. CEFAMEZIN [Suspect]
     Indication: DRUG USE FOR UNKNOWN INDICATION
     Dosage: 2G PER DAY
     Route: 042
     Dates: start: 20070509, end: 20070509
  2. LOXONIN [Suspect]
     Indication: DRUG USE FOR UNKNOWN INDICATION
     Dosage: 60MG THREE TIMES PER DAY
     Route: 048
     Dates: start: 20070505, end: 20070509
  3. DASEN [Suspect]
     Dosage: 10MG THREE TIMES PER DAY
     Route: 048
     Dates: start: 20070505, end: 20070509
  4. SELBEX [Suspect]
     Dosage: 50MG THREE TIMES PER DAY
     Route: 048
  5. VOLTAREN [Suspect]
     Dosage: 50MG FOUR TIMES PER DAY
     Route: 054
     Dates: start: 20070506, end: 20070506
  6. SODIUM CHLORIDE 0.9% [Concomitant]
     Route: 042

REACTIONS (6)
  - ANAPHYLACTIC SHOCK [None]
  - GENERALISED ERYTHEMA [None]
  - LIP OEDEMA [None]
  - OXYGEN SATURATION ABNORMAL [None]
  - PRURITUS GENERALISED [None]
  - URTICARIA [None]
